FAERS Safety Report 5687556-6 (Version None)
Quarter: 2008Q1

REPORT INFORMATION
  Report Type: 
  Country: None (occurrence: None)
  Receive Date: 20080328
  Receipt Date: 20061222
  Transmission Date: 20080703
  Serious: No
  Sender: FDA-Public Use
  Company Number: US-BAYER-US-2006-034946

PATIENT
  Age: 36 Year
  Sex: Female
  Weight: 68 kg

DRUGS (1)
  1. MIRENA [Suspect]
     Indication: CONTRACEPTION
     Route: 015
     Dates: start: 20060919, end: 20061109

REACTIONS (9)
  - ABDOMINAL DISTENSION [None]
  - ABDOMINAL PAIN [None]
  - ANOREXIA [None]
  - COMPLICATION OF DEVICE INSERTION [None]
  - DIZZINESS [None]
  - FLATULENCE [None]
  - HYPERHIDROSIS [None]
  - UTERINE SPASM [None]
  - VAGINAL HAEMORRHAGE [None]
